FAERS Safety Report 10953150 (Version 1)
Quarter: 2015Q1

REPORT INFORMATION
  Report Type: Spontaneous
  Country: US (occurrence: None)
  Receive Date: 20150226
  Receipt Date: 20150226
  Transmission Date: 20150721
  Serious: Yes (Other)
  Sender: FDA-Public Use
  Company Number: TPA2009A03324

PATIENT
  Age: 86 Year
  Sex: Female

DRUGS (1)
  1. DUETACT [Suspect]
     Active Substance: GLIMEPIRIDE\PIOGLITAZONE HYDROCHLORIDE
     Indication: TYPE 2 DIABETES MELLITUS
     Route: 048
     Dates: start: 2009

REACTIONS (1)
  - Hypoglycaemia [None]
